FAERS Safety Report 4380095-4 (Version None)
Quarter: 2004Q2

REPORT INFORMATION
  Report Type: 
  Country: None (occurrence: None)
  Receive Date: 20040614
  Receipt Date: 20040601
  Transmission Date: 20050107
  Serious: Yes (Hospitalization)
  Sender: FDA-Public Use
  Company Number: 2004036819

PATIENT
  Age: 82 Year
  Sex: Female

DRUGS (2)
  1. ZOLOFT [Suspect]
     Indication: DEPRESSION
     Dosage: 50 MG (50 MG, 1 IN 1 D), ORAL
     Route: 048
     Dates: start: 20020101
  2. SIMVASTATIN [Concomitant]

REACTIONS (4)
  - DEPRESSION [None]
  - DISEASE RECURRENCE [None]
  - HEADACHE [None]
  - TEMPORAL ARTERITIS [None]
